FAERS Safety Report 4455485-1 (Version None)
Quarter: 2004Q3

REPORT INFORMATION
  Report Type: 
  Country: None (occurrence: None)
  Receive Date: 20040917
  Receipt Date: 20040901
  Transmission Date: 20050211
  Serious: Yes (Hospitalization)
  Sender: FDA-Public Use
  Company Number: 201999

PATIENT
  Age: 49 Year
  Sex: Female
  Weight: 129.2752 kg

DRUGS (7)
  1. AVONEX [Suspect]
     Indication: MULTIPLE SCLEROSIS
     Dosage: 30 MCG QW IM
     Route: 030
     Dates: start: 20010420, end: 20040301
  2. AVONEX [Suspect]
     Indication: MULTIPLE SCLEROSIS
     Dosage: 30 MCG QW IM
     Route: 030
     Dates: start: 20040301
  3. MONOPRIL [Concomitant]
  4. TRAIMTERENE [Concomitant]
  5. ZANAFLEX [Concomitant]
  6. VALIUM [Concomitant]
  7. KENALOG [Concomitant]

REACTIONS (3)
  - CARDIAC DISORDER [None]
  - DEHYDRATION [None]
  - INFLUENZA [None]
